FAERS Safety Report 4489585-7 (Version None)
Quarter: 2004Q4

REPORT INFORMATION
  Report Type: 
  Country: None (occurrence: None)
  Receive Date: 20041026
  Receipt Date: 20041008
  Transmission Date: 20050328
  Serious: Yes (Hospitalization, Other)
  Sender: FDA-Public Use
  Company Number: EWC040840167

PATIENT

DRUGS (1)
  1. EVISTA [Suspect]
     Indication: OSTEOPOROSIS
     Dosage: 60 MG/1 DAY

REACTIONS (4)
  - BREAST CANCER STAGE III [None]
  - BREAST MICROCALCIFICATION [None]
  - BREAST NECROSIS [None]
  - PROGESTERONE RECEPTOR ASSAY POSITIVE [None]
